FAERS Safety Report 4439656-6 (Version None)
Quarter: 2004Q3

REPORT INFORMATION
  Report Type: 
  Country: None (occurrence: None)
  Receive Date: 20040830
  Receipt Date: 20040820
  Transmission Date: 20050211
  Serious: Yes (Hospitalization, Other)
  Sender: FDA-Public Use
  Company Number: 2004230069US

PATIENT
  Age: 80 Year
  Sex: Female
  Weight: 65.3 kg

DRUGS (5)
  1. CELEBREX [Suspect]
     Indication: RHEUMATOID ARTHRITIS
     Dosage: 200  MG, QD, ORAL
     Route: 048
  2. PREDNISONE [Concomitant]
  3. FOSAMAX [Concomitant]
  4. DIOVAN [Concomitant]
  5. PROTONIX [Concomitant]

REACTIONS (10)
  - ANGLE CLOSURE GLAUCOMA [None]
  - CATARACT [None]
  - CONDITION AGGRAVATED [None]
  - DEHYDRATION [None]
  - DRUG INEFFECTIVE [None]
  - HEADACHE [None]
  - MARKEDLY REDUCED DIETARY INTAKE [None]
  - SPINAL COLUMN STENOSIS [None]
  - URINARY TRACT INFECTION [None]
  - VAGINAL PAIN [None]
